FAERS Safety Report 5108864-3 (Version None)
Quarter: 2006Q3

REPORT INFORMATION
  Report Type: 
  Country: None (occurrence: None)
  Receive Date: 20060915
  Receipt Date: 20060915
  Transmission Date: 20061208
  Serious: Yes (Hospitalization)
  Sender: FDA-Public Use
  Company Number: None

PATIENT
  Age: 67 Year
  Sex: Male

DRUGS (18)
  1. HEPARIN [Suspect]
     Indication: ACUTE CORONARY SYNDROME
     Dates: start: 20060714, end: 20060726
  2. HEPARIN [Suspect]
     Indication: ACUTE MYOCARDIAL INFARCTION
     Dates: start: 20060714, end: 20060726
  3. HEPARIN [Suspect]
     Indication: INTRACARDIAC THROMBUS
     Dates: start: 20060714, end: 20060726
  4. HEPARIN [Suspect]
     Indication: ACUTE CORONARY SYNDROME
     Dates: start: 20060716, end: 20060726
  5. HEPARIN [Suspect]
     Indication: ACUTE MYOCARDIAL INFARCTION
     Dates: start: 20060716, end: 20060726
  6. HEPARIN [Suspect]
     Indication: INTRACARDIAC THROMBUS
     Dates: start: 20060716, end: 20060726
  7. AL HYDROX/MG HYDROX/SIMETHICONE [Concomitant]
  8. ASPIRIN [Concomitant]
  9. CLOPIDOGREL BISULFATE [Concomitant]
  10. ENALAPRIL MALEATE [Concomitant]
  11. FUROSEMIDE [Concomitant]
  12. HEPARIN/SODIUM CHLORIDE [Concomitant]
  13. IPRATROPIUM BR [Concomitant]
  14. LORAZEPAM [Concomitant]
  15. METOPROLOL [Concomitant]
  16. NITROGLYCERIN [Concomitant]
  17. OMEPRAZOLE [Concomitant]
  18. SIMVASTATIN [Concomitant]

REACTIONS (2)
  - ACTIVATED PARTIAL THROMBOPLASTIN TIME PROLONGED [None]
  - HAEMATURIA [None]
